FAERS Safety Report 11855919 (Version 1)
Quarter: 2015Q4

REPORT INFORMATION
  Report Type: Spontaneous
  Country: US (occurrence: US)
  Receive Date: 20151221
  Receipt Date: 20151221
  Transmission Date: 20160305
  Serious: Yes (Other)
  Sender: FDA-Public Use
  Company Number: US-SMITH AND NEPHEW, INC-2015SMT00614

PATIENT
  Age: 61 Year
  Sex: Male
  Weight: 112.47 kg

DRUGS (4)
  1. REGRANEX [Suspect]
     Active Substance: BECAPLERMIN
     Indication: WOUND
     Dosage: UNK, 1X/DAY
     Route: 061
     Dates: start: 201511
  2. UNSPECIFIED DIABETES MEDICATION(S) [Concomitant]
  3. UNSPECIFIED BLOOD PRESSURE MEDICATION(S) [Concomitant]
  4. UNSPECIFIED MEDICATION(S) [Concomitant]

REACTIONS (2)
  - Swelling [Unknown]
  - Osteomyelitis [Unknown]

NARRATIVE: CASE EVENT DATE: 20151123
